FAERS Safety Report 24022163 (Version 3)
Quarter: 2024Q3

REPORT INFORMATION
  Report Type: Spontaneous
  Country: PH (occurrence: PH)
  Receive Date: 20240627
  Receipt Date: 20240709
  Transmission Date: 20241017
  Serious: Yes (Death, Other)
  Sender: ROCHE
  Company Number: PH-BoehringerIngelheim-2024-BI-034635

PATIENT
  Age: 73 Year
  Sex: Female

DRUGS (2)
  1. ALTEPLASE [Suspect]
     Active Substance: ALTEPLASE
     Indication: Cerebrovascular accident
     Route: 065
     Dates: start: 20240604, end: 20240604
  2. ALTEPLASE [Suspect]
     Active Substance: ALTEPLASE
     Route: 042
     Dates: start: 20240604, end: 20240604

REACTIONS (4)
  - General physical health deterioration [Fatal]
  - Cerebral infarction [Fatal]
  - Brain herniation [Fatal]
  - Tachycardia [Recovered/Resolved]

NARRATIVE: CASE EVENT DATE: 20240605
